FAERS Safety Report 24227454 (Version 1)
Quarter: 2024Q3

REPORT INFORMATION
  Report Type: Spontaneous
  Country: GB (occurrence: GB)
  Receive Date: 20240820
  Receipt Date: 20240820
  Transmission Date: 20241016
  Serious: Yes (Other)
  Sender: TEVA
  Company Number: GB-MHRA-EMIS-6849-9a93c674-dcff-4f62-9805-2c875b3e330f

PATIENT
  Age: 66 Year
  Sex: Male
  Weight: 70 kg

DRUGS (1)
  1. RAMIPRIL [Suspect]
     Active Substance: RAMIPRIL
     Indication: Product used for unknown indication
     Route: 065
     Dates: start: 20240529

REACTIONS (4)
  - Chromaturia [Unknown]
  - Urine output decreased [Recovered/Resolved]
  - Back pain [Unknown]
  - Fatigue [Unknown]
